FAERS Safety Report 10787257 (Version 1)
Quarter: 2015Q1

REPORT INFORMATION
  Report Type: Spontaneous
  Country: US (occurrence: US)
  Receive Date: 20150211
  Receipt Date: 20150211
  Transmission Date: 20150721
  Serious: No
  Sender: FDA-Public Use
  Company Number: US-009507513-1502USA003118

PATIENT
  Sex: Female

DRUGS (4)
  1. SINGULAIR [Concomitant]
     Active Substance: MONTELUKAST SODIUM
     Route: 048
  2. GRASTEK [Suspect]
     Active Substance: PHLEUM PRATENSE POLLEN
     Dosage: STRENGTH: 2800BAU, ONE TABLET BAU, UNK
     Route: 060
     Dates: start: 20150203, end: 20150203
  3. ZYRTEC [Concomitant]
     Active Substance: CETIRIZINE HYDROCHLORIDE
  4. ALLEGRA [Concomitant]
     Active Substance: FEXOFENADINE HYDROCHLORIDE

REACTIONS (4)
  - Pruritus [Unknown]
  - Swelling [Unknown]
  - Swollen tongue [Unknown]
  - Urticaria [Unknown]

NARRATIVE: CASE EVENT DATE: 20150203
